FAERS Safety Report 18242403 (Version 1)
Quarter: 2020Q3

REPORT INFORMATION
  Report Type: Spontaneous
  Country: IN (occurrence: IN)
  Receive Date: 20200908
  Receipt Date: 20200908
  Transmission Date: 20201103
  Serious: Yes (Other)
  Sender: FDA-Public Use
  Company Number: IN-MYLANLABS-2020M1076322

PATIENT
  Age: 20 Year
  Sex: Female

DRUGS (2)
  1. DESOGESTREL/ETHINYL ESTRADIOL [Suspect]
     Active Substance: DESOGESTREL\ETHINYL ESTRADIOL
     Indication: ORAL CONTRACEPTION
     Dosage: FORMULATION: PILLS
     Route: 048
  2. DESOGESTREL/ETHINYL ESTRADIOL [Suspect]
     Active Substance: DESOGESTREL\ETHINYL ESTRADIOL
     Indication: POLYCYSTIC OVARIES

REACTIONS (4)
  - Condition aggravated [Recovering/Resolving]
  - Protein S deficiency [Recovering/Resolving]
  - Hypercoagulation [Recovering/Resolving]
  - Cerebrovascular accident [Recovered/Resolved]
